FAERS Safety Report 7072675-2 (Version None)
Quarter: 2010Q4

REPORT INFORMATION
  Report Type: 
  Country: None (occurrence: None)
  Receive Date: 20101029
  Receipt Date: 20100226
  Transmission Date: 20110411
  Serious: No
  Sender: FDA-Public Use
  Company Number: A0847051A

PATIENT
  Age: 50 Year
  Sex: Female

DRUGS (6)
  1. ADVAIR DISKUS 100/50 [Suspect]
     Indication: ASTHMA
     Dosage: 1PUFF TWICE PER DAY
     Route: 055
     Dates: start: 20091001
  2. HUMULIN INSULIN [Concomitant]
  3. HYDROCODONE [Concomitant]
  4. PAXIL [Concomitant]
  5. AMBIEN [Concomitant]
  6. TRAZODONE [Concomitant]

REACTIONS (2)
  - ORAL PAIN [None]
  - TONGUE DISORDER [None]
